FAERS Safety Report 22119909 (Version 9)
Quarter: 2024Q2

REPORT INFORMATION
  Report Type: Spontaneous
  Country: US (occurrence: US)
  Receive Date: 20230321
  Receipt Date: 20240502
  Transmission Date: 20240716
  Serious: Yes (Other)
  Sender: FDA-Public Use
  Company Number: US-PFIZER INC-PV202300050378

PATIENT
  Age: 39 Year
  Sex: Female

DRUGS (5)
  1. SOMAVERT [Suspect]
     Active Substance: PEGVISOMANT
     Indication: Acromegaly
     Dosage: 30 MG, (INJECT 30 MG UNDER THE SKIN (SUBCUTANEOUS INJECTION) ONE TIME FOR LOADING DOSE)
     Route: 058
  2. SOMAVERT [Suspect]
     Active Substance: PEGVISOMANT
     Indication: Gigantism
     Dosage: 25 MG, DAILY
     Route: 058
     Dates: start: 202204
  3. SOMAVERT [Suspect]
     Active Substance: PEGVISOMANT
     Dosage: 20 MG, (INJECT 20 MG UNDER THE SKIN (SUBCUTANEOUS INJECTION) DAILY)
     Route: 058
     Dates: start: 20230323
  4. SOMAVERT [Suspect]
     Active Substance: PEGVISOMANT
     Dosage: 20 MG, DAILY (INJECT 20 MG UNDER THE SKIN (SUBCUTANEOUS INJECTION))
     Route: 058
     Dates: start: 20230726
  5. SOMAVERT [Suspect]
     Active Substance: PEGVISOMANT
     Dosage: 30 MG, DAILY
     Route: 058
     Dates: start: 20240423

REACTIONS (9)
  - Crohn^s disease [Unknown]
  - Diverticulum [Unknown]
  - Disease recurrence [Unknown]
  - Nausea [Not Recovered/Not Resolved]
  - Headache [Not Recovered/Not Resolved]
  - Hyperhidrosis [Not Recovered/Not Resolved]
  - Peripheral swelling [Not Recovered/Not Resolved]
  - Off label use [Unknown]
  - Product dose omission issue [Not Recovered/Not Resolved]
